FAERS Safety Report 6518593-7 (Version None)
Quarter: 2009Q4

REPORT INFORMATION
  Report Type: 
  Country: None (occurrence: None)
  Receive Date: 20091218
  Receipt Date: 20091212
  Transmission Date: 20100525
  Serious: Yes (Other)
  Sender: FDA-Public Use
  Company Number: AMI0016467

PATIENT
  Sex: Female

DRUGS (4)
  1. TIMOLOL MALEATE [Suspect]
     Dosage: 046
     Dates: start: 20070101
  2. CARBOMER [Suspect]
     Indication: DRY EYE
     Dosage: 046
     Dates: start: 20070830, end: 20080325
  3. DIAZEPAM [Concomitant]
  4. POLYVINYL ALCOHOL [Concomitant]

REACTIONS (4)
  - ANXIETY [None]
  - EYE MOVEMENT DISORDER [None]
  - FLAT ANTERIOR CHAMBER OF EYE [None]
  - VISUAL IMPAIRMENT [None]
